FAERS Safety Report 17702579 (Version 4)
Quarter: 2020Q2

REPORT INFORMATION
  Report Type: Spontaneous
  Country: US (occurrence: US)
  Receive Date: 20200424
  Receipt Date: 20200515
  Transmission Date: 20200714
  Serious: No
  Sender: FDA-Public Use
  Company Number: US-SHIRE-US202014282

PATIENT
  Sex: Female

DRUGS (3)
  1. 433 (CARBAMAZEPINE) [Suspect]
     Active Substance: CARBAMAZEPINE
     Indication: EPILEPSY
     Dosage: 200 MILLIGRAM, UNKNOWN
     Route: 065
     Dates: start: 201912
  2. BRIVIACT [Suspect]
     Active Substance: BRIVARACETAM
     Indication: PRODUCT USED FOR UNKNOWN INDICATION
     Route: 065
  3. DILANTIN [Concomitant]
     Active Substance: PHENYTOIN
     Indication: PRODUCT USED FOR UNKNOWN INDICATION
     Route: 065

REACTIONS (18)
  - Blood sodium decreased [Unknown]
  - Drooling [Unknown]
  - Musculoskeletal stiffness [Unknown]
  - Asthenia [Unknown]
  - Alopecia [Unknown]
  - Pollakiuria [Unknown]
  - Arthralgia [Unknown]
  - Dizziness [Unknown]
  - Disturbance in attention [Unknown]
  - Oral pain [Unknown]
  - Muscle spasms [Unknown]
  - Pruritus [Unknown]
  - Vision blurred [Unknown]
  - Poor quality sleep [Unknown]
  - Depression [Unknown]
  - Rash vesicular [Unknown]
  - Initial insomnia [Unknown]
  - Nausea [Unknown]

NARRATIVE: CASE EVENT DATE: 20200422
